FAERS Safety Report 4959913-4 (Version None)
Quarter: 2006Q1

REPORT INFORMATION
  Report Type: 
  Country: None (occurrence: None)
  Receive Date: 20060331
  Receipt Date: 20050923
  Transmission Date: 20060701
  Serious: Yes (Other)
  Sender: FDA-Public Use
  Company Number: US-MERCK-0509USA03945

PATIENT
  Age: 49 Year
  Sex: Male
  Weight: 90 kg

DRUGS (11)
  1. VIOXX [Suspect]
     Indication: ARTHRITIS
     Route: 048
     Dates: start: 20040201
  2. KALETRA [Concomitant]
     Route: 065
  3. TRAZODONE HYDROCHLORIDE [Concomitant]
     Route: 065
  4. VIDEX [Concomitant]
     Route: 065
  5. BACTRIM [Concomitant]
     Route: 065
  6. CYCLOPHOSPHAMIDE AND DOXORUBICIN AND FLUOROURACIL [Concomitant]
     Route: 065
  7. VALIUM [Concomitant]
     Indication: ANXIETY
     Route: 065
     Dates: start: 20040101, end: 20050101
  8. VIREAD [Concomitant]
     Route: 065
  9. NIFEDIAC [Concomitant]
     Route: 065
  10. DIPHENOXYLATE [Concomitant]
     Route: 065
  11. VIAGRA [Concomitant]
     Route: 065
     Dates: start: 20040101, end: 20050101

REACTIONS (4)
  - ACQUIRED IMMUNODEFICIENCY SYNDROME [None]
  - ANXIETY [None]
  - CEREBROVASCULAR ACCIDENT [None]
  - POLYTRAUMATISM [None]
